FAERS Safety Report 10463075 (Version 2)
Quarter: 2014Q3

REPORT INFORMATION
  Report Type: Spontaneous
  Country: IL (occurrence: IL)
  Receive Date: 20140919
  Receipt Date: 20140919
  Transmission Date: 20150326
  Serious: Yes (Death, Hospitalization)
  Sender: FDA-Public Use
  Company Number: IL-PFIZER INC-2014045857

PATIENT
  Age: 79 Year
  Sex: Male

DRUGS (12)
  1. SUTENT [Suspect]
     Active Substance: SUNITINIB MALATE
     Indication: RENAL CELL CARCINOMA
     Dosage: 37.5 MG, CYCLIC
     Route: 048
     Dates: start: 20140101, end: 2014
  2. AMLO [Concomitant]
     Dosage: UNK
  3. VITAMIN D [Concomitant]
     Active Substance: CHOLECALCIFEROL
     Dosage: UNK
  4. SUTENT [Suspect]
     Active Substance: SUNITINIB MALATE
     Dosage: 50 MG, 1X/DAY, CYCLE NUMBER AND CUMULATIVE DOSE WERE HARD TO ESTIMATE
     Route: 048
     Dates: start: 2014, end: 20140908
  5. RAMIPRIL. [Concomitant]
     Active Substance: RAMIPRIL
     Dosage: UNK
  6. SIMVASTATIN. [Concomitant]
     Active Substance: SIMVASTATIN
     Dosage: UNK
  7. NORMITEN [Concomitant]
     Active Substance: ATENOLOL
     Dosage: UNK
  8. TEVAPIRIN [Concomitant]
     Dosage: UNK
  9. FUSID [Concomitant]
     Active Substance: FUROSEMIDE
     Dosage: UNK
  10. AVODART [Concomitant]
     Active Substance: DUTASTERIDE
     Dosage: UNK
  11. REOLIN [Concomitant]
     Dosage: UNK
  12. SPIRIVA [Concomitant]
     Active Substance: TIOTROPIUM BROMIDE MONOHYDRATE
     Dosage: UNK

REACTIONS (27)
  - Wound [Recovering/Resolving]
  - Ocular hyperaemia [Recovered/Resolved]
  - Blood urine present [Recovered/Resolved]
  - Erythema [Not Recovered/Not Resolved]
  - Oedema peripheral [Recovering/Resolving]
  - Dyspnoea [Not Recovered/Not Resolved]
  - Decubitus ulcer [Not Recovered/Not Resolved]
  - Decreased appetite [Recovering/Resolving]
  - Stomatitis [Recovered/Resolved]
  - Musculoskeletal pain [Recovering/Resolving]
  - Dysphonia [Not Recovered/Not Resolved]
  - Diarrhoea [Not Recovered/Not Resolved]
  - Skin abrasion [Not Recovered/Not Resolved]
  - Pyrexia [Not Recovered/Not Resolved]
  - Pneumonia [Recovering/Resolving]
  - Wound complication [Recovered/Resolved]
  - Blood pressure decreased [Recovered/Resolved]
  - Hypersomnia [Unknown]
  - Death [Fatal]
  - Haematoma [Not Recovered/Not Resolved]
  - Diarrhoea [Recovered/Resolved]
  - Skin exfoliation [Not Recovered/Not Resolved]
  - Eye pruritus [Recovered/Resolved]
  - Asthenia [Not Recovered/Not Resolved]
  - Blood albumin decreased [Unknown]
  - Oral discomfort [Recovered/Resolved]
  - Cough [Not Recovered/Not Resolved]

NARRATIVE: CASE EVENT DATE: 2014
